FAERS Safety Report 21404463 (Version 1)
Quarter: 2022Q4

REPORT INFORMATION
  Report Type: Report from Study
  Country: US (occurrence: US)
  Receive Date: 20221003
  Receipt Date: 20221003
  Transmission Date: 20230113
  Serious: Yes (Other)
  Sender: FDA-Public Use
  Company Number: US-ABBVIE-22K-163-4524361-00

PATIENT
  Sex: Female
  Weight: 54.431 kg

DRUGS (11)
  1. HUMIRA [Suspect]
     Active Substance: ADALIMUMAB
     Indication: Rheumatoid arthritis
     Dosage: CITRATE FREE
     Route: 058
     Dates: start: 2021, end: 20220905
  2. PFIZER-BIONTECH COVID-19 VACCINE [Concomitant]
     Active Substance: TOZINAMERAN
     Indication: COVID-19 immunisation
     Dosage: FIRST DOSE
     Route: 030
     Dates: start: 20210325, end: 20210325
  3. PFIZER-BIONTECH COVID-19 VACCINE [Concomitant]
     Active Substance: TOZINAMERAN
     Indication: COVID-19 immunisation
     Dosage: SECOND DOSE
     Route: 030
     Dates: start: 20210415, end: 20210415
  4. PFIZER-BIONTECH COVID-19 VACCINE [Concomitant]
     Active Substance: TOZINAMERAN
     Indication: COVID-19 immunisation
     Dosage: FIRST BOOSTER DOSE
     Route: 030
     Dates: start: 20210829, end: 20210829
  5. PFIZER-BIONTECH COVID-19 VACCINE [Concomitant]
     Active Substance: TOZINAMERAN
     Indication: COVID-19 immunisation
     Dosage: SECOND BOOSTER DOSE
     Route: 030
     Dates: start: 20220223, end: 20220223
  6. LIPITOR [Concomitant]
     Active Substance: ATORVASTATIN CALCIUM
     Indication: Blood cholesterol increased
  7. HIPREX [Concomitant]
     Active Substance: METHENAMINE HIPPURATE
     Indication: Antibiotic prophylaxis
  8. IMITREX [Concomitant]
     Active Substance: SUMATRIPTAN SUCCINATE
     Indication: Headache
     Dosage: 50 MILLIGRAM
  9. IMITREX [Concomitant]
     Active Substance: SUMATRIPTAN SUCCINATE
     Indication: Headache
  10. BOTOX [Concomitant]
     Active Substance: ONABOTULINUMTOXINA
     Indication: Torticollis
  11. BOTOX [Concomitant]
     Active Substance: ONABOTULINUMTOXINA
     Indication: Torticollis

REACTIONS (5)
  - Immunodeficiency [Not Recovered/Not Resolved]
  - Surgery [Not Recovered/Not Resolved]
  - Pruritus [Recovering/Resolving]
  - Dry eye [Recovering/Resolving]
  - Urinary tract infection [Recovered/Resolved]

NARRATIVE: CASE EVENT DATE: 20210101
